APPROVED DRUG PRODUCT: ADENOSINE
Active Ingredient: ADENOSINE
Strength: 3MG/ML
Dosage Form/Route: INJECTABLE;INJECTION
Application: A077133 | Product #001 | TE Code: AP
Applicant: FRESENIUS KABI USA LLC
Approved: Apr 27, 2005 | RLD: No | RS: No | Type: RX